FAERS Safety Report 9450456 (Version 1)
Quarter: 2013Q3

REPORT INFORMATION
  Report Type: Spontaneous
  Country: US (occurrence: US)
  Receive Date: 20130809
  Receipt Date: 20130809
  Transmission Date: 20140515
  Serious: No
  Sender: FDA-Public Use
  Company Number: US-PFIZER INC-2013231791

PATIENT
  Age: 89 Year
  Sex: Female
  Weight: 54.4 kg

DRUGS (2)
  1. ZOLOFT [Suspect]
     Dosage: 100 MG, DAILY AT NIGHT
     Dates: start: 2008
  2. ARICEPT [Concomitant]
     Dosage: UNK

REACTIONS (1)
  - Insomnia [Not Recovered/Not Resolved]
